FAERS Safety Report 9293036 (Version 1)
Quarter: 2013Q2

REPORT INFORMATION
  Report Type: Spontaneous
  Country: US (occurrence: None)
  Receive Date: 20130513
  Receipt Date: 20130513
  Transmission Date: 20140414
  Serious: Yes (Other)
  Sender: FDA-Public Use
  Company Number: 2013SA047073

PATIENT
  Age: 69 Year
  Sex: Male

DRUGS (1)
  1. ICY HOT [Suspect]
     Indication: PRODUCT USED FOR UNKNOWN INDICATION
     Dates: start: 20130506

REACTIONS (2)
  - Application site vesicles [None]
  - Expired drug administered [None]
